FAERS Safety Report 11312280 (Version 1)
Quarter: 2015Q3

REPORT INFORMATION
  Report Type: Spontaneous
  Country: US (occurrence: None)
  Receive Date: 20150724
  Receipt Date: 20150724
  Transmission Date: 20151125
  Serious: No
  Sender: FDA-Public Use
  Company Number: None

PATIENT
  Age: 52 Year
  Sex: Female

DRUGS (13)
  1. DEXAMETHASONE. [Concomitant]
     Active Substance: DEXAMETHASONE
  2. KETOROLAC [Concomitant]
     Active Substance: KETOROLAC\KETOROLAC TROMETHAMINE
  3. MIDAZOLAM [Concomitant]
     Active Substance: MIDAZOLAM\MIDAZOLAM HYDROCHLORIDE
  4. CEFAZOLIN [Concomitant]
     Active Substance: CEFAZOLIN
  5. LIDOCAINE. [Concomitant]
     Active Substance: LIDOCAINE
  6. NALOXONE [Concomitant]
     Active Substance: NALOXONE
  7. VECURONIUM [Concomitant]
     Active Substance: VECURONIUM BROMIDE
  8. FENTANYL. [Concomitant]
     Active Substance: FENTANYL
  9. PROPOFOL. [Concomitant]
     Active Substance: PROPOFOL
  10. SCOPOLAMINE [Suspect]
     Active Substance: SCOPOLAMINE
     Indication: SURGERY
     Dosage: 1.5 MG PATCH
     Route: 061
     Dates: start: 20150403
  11. GLYCOPYRROLATE. [Concomitant]
     Active Substance: GLYCOPYRROLATE
  12. HYDROMORPHONE [Concomitant]
     Active Substance: HYDROMORPHONE
  13. ONDANSETRON [Concomitant]
     Active Substance: ONDANSETRON

REACTIONS (2)
  - Incorrect drug administration duration [None]
  - Delirium [None]

NARRATIVE: CASE EVENT DATE: 20150403
